FAERS Safety Report 7480983-6 (Version None)
Quarter: 2011Q2

REPORT INFORMATION
  Report Type: 
  Country: None (occurrence: None)
  Receive Date: 20110516
  Receipt Date: 20110422
  Transmission Date: 20111010
  Serious: No
  Sender: FDA-Public Use
  Company Number: US-B.I. PHARMACEUTICALS,INC./RIDGEFIELD-2011-BP-06954BP

PATIENT
  Age: 83 Year
  Sex: Female

DRUGS (17)
  1. VITAMIN D [Concomitant]
  2. TOPROL-XL [Concomitant]
  3. WARFARIN SODIUM [Concomitant]
  4. CADUET [Concomitant]
  5. FERROUS SULFATE TAB [Concomitant]
  6. CENTRUM SILVER [Concomitant]
  7. TRICOR [Concomitant]
  8. AMIODARONE HCL [Concomitant]
  9. RAMIPRIL [Concomitant]
  10. PRESERVISION WITH LUTIN [Concomitant]
  11. LOSARTAN POTASSIUM [Concomitant]
  12. HYDROCHLOROT [Concomitant]
  13. CATAPRES-TTS-1 [Suspect]
     Dosage: 0.2 MG
     Route: 061
     Dates: start: 20110301
  14. CATAPRES [Suspect]
     Indication: HYPERTENSION
     Dosage: 0.2 MG
     Route: 048
     Dates: start: 20110227, end: 20110301
  15. POTASSIUM [Concomitant]
  16. CATAPRES-TTS-1 [Suspect]
     Indication: HYPERTENSION
     Dosage: 0.2 MG
     Route: 061
     Dates: start: 20080101, end: 20110226
  17. CABERCOLINE [Concomitant]

REACTIONS (7)
  - APPLICATION SITE PRURITUS [None]
  - ABDOMINAL DISCOMFORT [None]
  - BURNING SENSATION [None]
  - DRY MOUTH [None]
  - CYSTITIS [None]
  - APPLICATION SITE RASH [None]
  - APPLICATION SITE ERYTHEMA [None]
